FAERS Safety Report 9061734 (Version 1)
Quarter: 2013Q1

REPORT INFORMATION
  Report Type: Spontaneous
  Country: US (occurrence: None)
  Receive Date: 20130122
  Receipt Date: 20130122
  Transmission Date: 20140127
  Serious: Yes (Death)
  Sender: FDA-Public Use
  Company Number: UTC-028005

PATIENT
  Age: 69 Year
  Sex: Female
  Weight: 72.27 kg

DRUGS (4)
  1. REMODULIN (2.5 MILLIGRAM/MILLILITERS, INJECTION FOR INFUSION) (TREPROSTINIL SODIUM) [Suspect]
     Indication: PULMONARY HYPERTENSION
     Dosage: (0.51 UG/KG, 1 IN 1 MIN)
     Route: 041
  2. COUMADIN (WARFARIN SODIUM) [Concomitant]
  3. REVATIO [Concomitant]
  4. TRACLEER (BOSENTAN) [Concomitant]

REACTIONS (1)
  - Death [None]
